FAERS Safety Report 23649803 (Version 2)
Quarter: 2024Q1

REPORT INFORMATION
  Report Type: Spontaneous
  Country: KR (occurrence: KR)
  Receive Date: 20240319
  Receipt Date: 20240328
  Transmission Date: 20240410
  Serious: Yes (Hospitalization)
  Sender: FDA-Public Use
  Company Number: KR-BoehringerIngelheim-2024-BI-014991

PATIENT
  Age: 32 Year
  Sex: Female
  Weight: 75 kg

DRUGS (2)
  1. JARDIANCE [Suspect]
     Active Substance: EMPAGLIFLOZIN
     Indication: Diabetes mellitus
     Route: 048
  2. METFORMIN [Concomitant]
     Active Substance: METFORMIN HYDROCHLORIDE
     Indication: Diabetes mellitus
     Route: 048

REACTIONS (9)
  - Metabolic acidosis [Unknown]
  - Mental status changes [Unknown]
  - Inadequate diet [Unknown]
  - Pollakiuria [Unknown]
  - Asthenia [Unknown]
  - Thirst [Unknown]
  - Nausea [Unknown]
  - Vomiting [Unknown]
  - Blood glucose increased [Unknown]
